FAERS Safety Report 11630818 (Version 2)
Quarter: 2015Q4

REPORT INFORMATION
  Report Type: Spontaneous
  Country: US (occurrence: US)
  Receive Date: 20151014
  Receipt Date: 20151102
  Transmission Date: 20160304
  Serious: No
  Sender: FDA-Public Use
  Company Number: US-GLAXOSMITHKLINE-US2015GSK142330

PATIENT
  Age: 42 Year
  Sex: Female

DRUGS (2)
  1. TANZEUM [Suspect]
     Active Substance: ALBIGLUTIDE
     Indication: INSULIN RESISTANCE
     Dosage: 50 MG, WE
     Route: 042
     Dates: start: 201509
  2. TANZEUM [Suspect]
     Active Substance: ALBIGLUTIDE
     Indication: POLYCYSTIC OVARIES

REACTIONS (5)
  - Device use error [Unknown]
  - Underdose [Unknown]
  - Off label use [Unknown]
  - Incorrect product storage [Unknown]
  - Device difficult to use [Unknown]

NARRATIVE: CASE EVENT DATE: 201509
